FAERS Safety Report 25233593 (Version 1)
Quarter: 2025Q2

REPORT INFORMATION
  Report Type: Spontaneous
  Country: DE (occurrence: DE)
  Receive Date: 20250424
  Receipt Date: 20250424
  Transmission Date: 20250716
  Serious: Yes (Other)
  Sender: AMICUS THERAPEUTICS
  Company Number: DE-AMICUS THERAPEUTICS, INC.-AMI_3940

PATIENT
  Sex: Male

DRUGS (1)
  1. GALAFOLD [Suspect]
     Active Substance: MIGALASTAT HYDROCHLORIDE
     Indication: Fabry^s disease
     Dosage: UNK, QOD
     Route: 048

REACTIONS (1)
  - Renal impairment [Unknown]
